FAERS Safety Report 10671471 (Version 1)
Quarter: 2014Q4

REPORT INFORMATION
  Report Type: Spontaneous
  Country: IT (occurrence: IT)
  Receive Date: 20141223
  Receipt Date: 20141223
  Transmission Date: 20150529
  Serious: Yes (Other)
  Sender: FDA-Public Use
  Company Number: IT-NOVOPROD-433030

PATIENT
  Age: 53 Year
  Sex: Male

DRUGS (2)
  1. NOVORAPID [Suspect]
     Active Substance: INSULIN ASPART
     Indication: DIABETES MELLITUS
     Dosage: 30 IU/DIE (4+12+14 IU)
     Route: 058
     Dates: start: 20140101
  2. LANTUS [Suspect]
     Active Substance: INSULIN GLARGINE
     Indication: DIABETES MELLITUS
     Dosage: 6 IU/DIE
     Route: 058
     Dates: start: 20140101

REACTIONS (5)
  - Hypoglycaemia [Recovering/Resolving]
  - Confusional state [Recovering/Resolving]
  - Clavicle fracture [Recovering/Resolving]
  - Disorientation [Recovering/Resolving]
  - Drop attacks [Recovering/Resolving]

NARRATIVE: CASE EVENT DATE: 20141126
